FAERS Safety Report 20736227 (Version 5)
Quarter: 2022Q4

REPORT INFORMATION
  Report Type: Report from Study
  Country: CN (occurrence: CN)
  Receive Date: 20220421
  Receipt Date: 20221004
  Transmission Date: 20230113
  Serious: Yes (Hospitalization, Disabling)
  Sender: FDA-Public Use
  Company Number: CN-BAYER-2021A233328

PATIENT
  Age: 65 Year
  Sex: Male
  Weight: 74 kg

DRUGS (27)
  1. RIVAROXABAN [Suspect]
     Active Substance: RIVAROXABAN
     Indication: Cardiovascular event prophylaxis
     Dosage: 2.5 MG, BID
     Route: 048
     Dates: start: 20210727
  2. RIVAROXABAN [Suspect]
     Active Substance: RIVAROXABAN
     Indication: Coronary artery disease
     Route: 048
  3. RIVAROXABAN [Suspect]
     Active Substance: RIVAROXABAN
     Indication: Peripheral arterial occlusive disease
     Route: 048
  4. ASPIRIN [Suspect]
     Active Substance: ASPIRIN
     Indication: Cardiovascular event prophylaxis
     Dosage: 100 MG, QD
     Route: 065
     Dates: start: 20190422
  5. ASPIRIN [Suspect]
     Active Substance: ASPIRIN
     Indication: Coronary artery disease
  6. ASPIRIN [Suspect]
     Active Substance: ASPIRIN
     Indication: Peripheral arterial occlusive disease
  7. CLOPIDOGREL [Concomitant]
     Active Substance: CLOPIDOGREL BISULFATE
     Indication: Antiplatelet therapy
     Dosage: 75 MG, QD
     Dates: start: 20201119, end: 20210727
  8. ACARBOSE [Concomitant]
     Active Substance: ACARBOSE
     Dosage: 50 MG, TID
     Dates: start: 2011
  9. ATORVASTATIN CALCIUM [Concomitant]
     Active Substance: ATORVASTATIN CALCIUM
     Dosage: 20 MG, QD
     Dates: start: 20190422
  10. INSULIN GLARGINE [Concomitant]
     Active Substance: INSULIN GLARGINE
     Dosage: 18 DF, QD
     Dates: start: 201810, end: 20201118
  11. NIFEDIPINE [Concomitant]
     Active Substance: NIFEDIPINE
     Dosage: 30 MG, QD
     Dates: start: 1979
  12. ISOSORBIDE MONONITRATE [Concomitant]
     Active Substance: ISOSORBIDE MONONITRATE
     Dosage: 50 MG, QD
     Dates: start: 20201124, end: 20201127
  13. HYDROCHLOROTHIAZIDE\IRBESARTAN [Concomitant]
     Active Substance: HYDROCHLOROTHIAZIDE\IRBESARTAN
     Dosage: 1 DF, QD
     Dates: start: 20190424, end: 20190501
  14. INDAPAMIDE\PERINDOPRIL [Concomitant]
     Active Substance: INDAPAMIDE\PERINDOPRIL
     Dosage: 1 DF, QD
     Dates: start: 20201124, end: 20201214
  15. TAMSULOSIN [Concomitant]
     Active Substance: TAMSULOSIN
     Dosage: 0.2 MG, QD
     Dates: start: 20201126, end: 20201127
  16. INSULINS AND ANALOGUES FOR INJECTION, LONG-ACTING [Concomitant]
     Dosage: 15 DF, QD
     Dates: start: 20201119
  17. HYDROCHLOROTHIAZIDE [Concomitant]
     Active Substance: HYDROCHLOROTHIAZIDE
     Dosage: 12.5 MG, QD
     Dates: start: 20210517, end: 20210524
  18. SPIRONOLACTONE [Concomitant]
     Active Substance: SPIRONOLACTONE
     Dosage: 10 MG, QD
     Dates: start: 20210517, end: 20210524
  19. CILOSTAZOL [Concomitant]
     Active Substance: CILOSTAZOL
     Indication: Antiplatelet therapy
     Dosage: 100 MG, BID
     Dates: start: 20210517, end: 20210524
  20. PAPAVERINE [Concomitant]
     Active Substance: PAPAVERINE
     Dosage: 90 MG, BID
     Dates: start: 20201119, end: 20201127
  21. LANSOPRAZOLE [Concomitant]
     Active Substance: LANSOPRAZOLE
     Dosage: 30 MG, BID
     Dates: start: 20201119, end: 20201127
  22. HEPARIN CALCIUM [Concomitant]
     Active Substance: HEPARIN CALCIUM
     Dosage: 4100 IU, QD
     Dates: start: 20201124, end: 20201127
  23. BENAZEPRIL [Concomitant]
     Active Substance: BENAZEPRIL HYDROCHLORIDE
     Dosage: 10 MG, QD
     Dates: start: 20201124, end: 20201208
  24. ENOXAPARIN SODIUM [Concomitant]
     Active Substance: ENOXAPARIN SODIUM
     Dosage: 4000 IU, BID
     Dates: start: 20210520, end: 20210524
  25. IRBESARTAN [Concomitant]
     Active Substance: IRBESARTAN
     Dosage: 150 MG, QD
     Dates: start: 1979
  26. DEXAMETHASONE [Concomitant]
     Active Substance: DEXAMETHASONE
     Dosage: 10 MG, PRN
     Dates: start: 20201125, end: 20201127
  27. PROMETHAZINE [Concomitant]
     Active Substance: PROMETHAZINE HYDROCHLORIDE
     Dosage: 1 MG, PRN
     Dates: start: 20201125, end: 20201127

REACTIONS (2)
  - Cerebral infarction [Recovered/Resolved with Sequelae]
  - Cerebral infarction [Recovered/Resolved with Sequelae]

NARRATIVE: CASE EVENT DATE: 20211012
